FAERS Safety Report 23923168 (Version 1)
Quarter: 2024Q2

REPORT INFORMATION
  Report Type: Report from Study
  Country: CA (occurrence: CA)
  Receive Date: 20240531
  Receipt Date: 20240531
  Transmission Date: 20240715
  Serious: Yes (Hospitalization)
  Sender: FDA-Public Use
  Company Number: CA-ABBVIE-5780116

PATIENT
  Age: 62 Year
  Sex: Female

DRUGS (1)
  1. RINVOQ [Suspect]
     Active Substance: UPADACITINIB
     Indication: Rheumatoid arthritis
     Route: 048
     Dates: start: 20200313

REACTIONS (3)
  - Gastrointestinal haemorrhage [Unknown]
  - Lymphocyte count abnormal [Unknown]
  - Haemoglobin abnormal [Unknown]

NARRATIVE: CASE EVENT DATE: 20240501
